FAERS Safety Report 5854159-X (Version None)
Quarter: 2008Q3

REPORT INFORMATION
  Report Type: 
  Country: None (occurrence: None)
  Receive Date: 20080822
  Receipt Date: 20080815
  Transmission Date: 20090109
  Serious: Yes (Other)
  Sender: FDA-Public Use
  Company Number: US-ELI_LILLY_AND_COMPANY-US200709005091

PATIENT
  Sex: Male
  Weight: 68.027 kg

DRUGS (1)
  1. ZYPREXA [Suspect]
     Dosage: 300 ML, 3/D
     Dates: start: 20000201, end: 20010601

REACTIONS (4)
  - CEREBROVASCULAR DISORDER [None]
  - DIABETES MELLITUS [None]
  - HYPERTENSION [None]
  - METABOLIC DISORDER [None]
